FAERS Safety Report 9292916 (Version 2)
Quarter: 2013Q2

REPORT INFORMATION
  Report Type: Spontaneous
  Country: FR (occurrence: FR)
  Receive Date: 20130516
  Receipt Date: 20130516
  Transmission Date: 20140414
  Serious: Yes (Hospitalization)
  Sender: FDA-Public Use
  Company Number: FR-PFIZER INC-2006039674

PATIENT
  Age: 78 Year
  Sex: Female

DRUGS (10)
  1. FUROSEMIDE [Suspect]
     Dosage: 40 MG, 1X/DAY
     Route: 048
     Dates: start: 2004, end: 20060202
  2. PANTOPRAZOLE SODIUM [Suspect]
     Dosage: 40 MG, 1X/DAY
     Route: 048
     Dates: start: 2004, end: 20060202
  3. DOLIPRANE [Suspect]
     Indication: PRODUCT USED FOR UNKNOWN INDICATION
     Dosage: 1 G, 3X/DAY
     Route: 048
     Dates: start: 2004
  4. TAHOR [Concomitant]
     Route: 048
     Dates: start: 2004
  5. AVANDIA [Concomitant]
     Route: 048
  6. DETENSIEL [Concomitant]
     Route: 048
     Dates: start: 2004
  7. POLY-KARAYA [Concomitant]
     Dosage: DAILY DOSE 3
     Route: 048
     Dates: start: 2004
  8. METEOSPASMYL [Concomitant]
     Route: 065
     Dates: start: 2004
  9. LEXOMIL [Concomitant]
     Dosage: DAILY DOSE 1
     Route: 065
     Dates: start: 2004
  10. ARESTAL [Concomitant]
     Dosage: DAILY DOSE 3
     Route: 065
     Dates: start: 2004

REACTIONS (2)
  - Pancytopenia [Not Recovered/Not Resolved]
  - Treatment noncompliance [None]
